FAERS Safety Report 25169801 (Version 1)
Quarter: 2025Q2

REPORT INFORMATION
  Report Type: Spontaneous
  Country: US (occurrence: US)
  Receive Date: 20250407
  Receipt Date: 20250407
  Transmission Date: 20250716
  Serious: No
  Sender: PFIZER
  Company Number: US-PFIZER INC-202500068082

PATIENT
  Age: 65 Year
  Sex: Female
  Weight: 58.97 kg

DRUGS (1)
  1. ZAVZPRET [Suspect]
     Active Substance: ZAVEGEPANT HYDROCHLORIDE
     Indication: Migraine
     Route: 045
     Dates: start: 20250317, end: 20250327

REACTIONS (5)
  - Nasal discomfort [Unknown]
  - Drug ineffective [Unknown]
  - Pain [Unknown]
  - Asthenia [Unknown]
  - Therapeutic product effect incomplete [Unknown]
